FAERS Safety Report 17954962 (Version 2)
Quarter: 2020Q3

REPORT INFORMATION
  Report Type: Report from Study
  Country: US (occurrence: US)
  Receive Date: 20200629
  Receipt Date: 20200701
  Transmission Date: 20201103
  Serious: Yes (Other)
  Sender: FDA-Public Use
  Company Number: US-ROCHE-2629988

PATIENT
  Sex: Female

DRUGS (14)
  1. FISH OIL OMEGA 3 [Concomitant]
     Active Substance: FISH OIL
     Dosage: DAILY
     Route: 065
  2. TOPIRAMATE. [Concomitant]
     Active Substance: TOPIRAMATE
     Route: 065
  3. VITAMIN D [ERGOCALCIFEROL] [Concomitant]
     Active Substance: ERGOCALCIFEROL
  4. KLONOPIN [Concomitant]
     Active Substance: CLONAZEPAM
     Dosage: 3 TIMES DAILY
     Route: 065
  5. ZOFRAN [Concomitant]
     Active Substance: ONDANSETRON HYDROCHLORIDE
     Route: 065
  6. SILVADENE [Concomitant]
     Active Substance: SILVER SULFADIAZINE
  7. ARISTOCORT [TRIAMCINOLONE ACETONIDE] [Concomitant]
     Active Substance: TRIAMCINOLONE ACETONIDE
  8. VALIUM [Concomitant]
     Active Substance: DIAZEPAM
     Dosage: EVERY 8 HOURS NEEDED
     Route: 065
  9. IBUPROFEN. [Concomitant]
     Active Substance: IBUPROFEN
     Dosage: AS NEEDED
     Route: 065
  10. ZYRTEC [Concomitant]
     Active Substance: CETIRIZINE HYDROCHLORIDE
     Route: 065
  11. OCREVUS [Suspect]
     Active Substance: OCRELIZUMAB
     Indication: RELAPSING MULTIPLE SCLEROSIS
     Dosage: ONGOING UNKNOWN?INITIAL DOSE: 300 MG IV ON DAY 1 AND DAY 15?SUBSEQUENT DOSE: 600 MG IV EVERY 6 MONTH
     Route: 042
     Dates: start: 20200226
  12. DIPROLENE [Concomitant]
     Active Substance: BETAMETHASONE DIPROPIONATE
  13. ALPRAZOLAM. [Concomitant]
     Active Substance: ALPRAZOLAM
     Dosage: TAKE 1 TABLET ONE HOUR BEFORE PROCEDURE
     Route: 065
  14. SEROQUEL [Concomitant]
     Active Substance: QUETIAPINE FUMARATE
     Route: 065

REACTIONS (2)
  - Diarrhoea [Unknown]
  - Kidney infection [Unknown]
